FAERS Safety Report 24380802 (Version 1)
Quarter: 2024Q3

REPORT INFORMATION
  Report Type: Spontaneous
  Country: RS (occurrence: RS)
  Receive Date: 20240930
  Receipt Date: 20240930
  Transmission Date: 20241016
  Serious: Yes (Hospitalization)
  Sender: BRISTOL MYERS SQUIBB
  Company Number: RS-BRISTOL-MYERS SQUIBB COMPANY-2024-150598

PATIENT
  Age: 44 Year
  Sex: Male

DRUGS (2)
  1. OPDIVO [Suspect]
     Active Substance: NIVOLUMAB
     Indication: Malignant melanoma
     Dosage: 10MG/ML, INTRAVENOUS INFUSION
     Route: 042
     Dates: start: 20230824
  2. OPDIVO [Suspect]
     Active Substance: NIVOLUMAB
     Dosage: INTRAVENOUS INFUSION
     Route: 042
     Dates: start: 20240605

REACTIONS (3)
  - Candida infection [Recovering/Resolving]
  - Irritable bowel syndrome [Recovering/Resolving]
  - General physical health deterioration [Recovering/Resolving]

NARRATIVE: CASE EVENT DATE: 20240615
